FAERS Safety Report 21957367 (Version 1)
Quarter: 2023Q1

REPORT INFORMATION
  Report Type: Spontaneous
  Country: US (occurrence: US)
  Receive Date: 20230206
  Receipt Date: 20230206
  Transmission Date: 20230418
  Serious: Yes (Other)
  Sender: FDA-Public Use
  Company Number: US-PFIZER INC-PV202300022389

PATIENT
  Age: 82 Year
  Sex: Male

DRUGS (2)
  1. IBRANCE [Suspect]
     Active Substance: PALBOCICLIB
     Dosage: UNK
     Dates: end: 20191117
  2. LETROZOLE [Concomitant]
     Active Substance: LETROZOLE
     Dosage: UNK

REACTIONS (7)
  - Toe amputation [Unknown]
  - Cytopenia [Unknown]
  - Osteomyelitis [Unknown]
  - Neoplasm progression [Unknown]
  - Full blood count decreased [Unknown]
  - Pulmonary mass [Unknown]
  - Impaired healing [Unknown]
